FAERS Safety Report 19818244 (Version 1)
Quarter: 2021Q3

REPORT INFORMATION
  Report Type: Spontaneous
  Country: CA (occurrence: CA)
  Receive Date: 20210911
  Receipt Date: 20210911
  Transmission Date: 20211014
  Serious: Yes (Life-Threatening, Hospitalization)
  Sender: FDA-Public Use
  Company Number: CA-TEVA-2021-CA-1950550

PATIENT
  Age: 11 Year
  Sex: Male
  Weight: 31 kg

DRUGS (4)
  1. ETOPOSIDE. [Suspect]
     Active Substance: ETOPOSIDE
     Route: 065
  2. CYTARABINE INJECTION [Suspect]
     Active Substance: CYTARABINE
     Route: 065
  3. CYCLOPHOSPHAMIDE. [Suspect]
     Active Substance: CYCLOPHOSPHAMIDE
     Route: 065
  4. THIOGUANINE [Suspect]
     Active Substance: THIOGUANINE
     Route: 065

REACTIONS (1)
  - Febrile neutropenia [Recovering/Resolving]
